FAERS Safety Report 6756913-9 (Version None)
Quarter: 2010Q2

REPORT INFORMATION
  Report Type: 
  Country: None (occurrence: None)
  Receive Date: 20100604
  Receipt Date: 20100601
  Transmission Date: 20101027
  Serious: Yes (Death, Hospitalization, Other)
  Sender: FDA-Public Use
  Company Number: PHHO2008US14104

PATIENT
  Sex: Male

DRUGS (6)
  1. NEORAL [Suspect]
     Indication: RENAL TRANSPLANT
     Dosage: 225 MG / DAY
     Route: 048
     Dates: start: 20060725
  2. NEORAL [Suspect]
     Dosage: 300 MG / DAY
     Route: 048
     Dates: start: 20070718, end: 20070904
  3. CELLCEPT [Concomitant]
     Indication: RENAL TRANSPLANT
     Dosage: UNK
     Dates: start: 20060725, end: 20070907
  4. PREDNISONE [Concomitant]
     Indication: RENAL TRANSPLANT
     Dosage: UNK
     Dates: start: 20060727, end: 20071010
  5. KAYEXALATE [Concomitant]
     Dosage: UNK
     Dates: start: 20071029, end: 20071029
  6. CALCIUM GLUCONATE [Concomitant]
     Dosage: UNK
     Dates: start: 20071029, end: 20071029

REACTIONS (13)
  - ABDOMINAL PAIN [None]
  - BLADDER NEOPLASM SURGERY [None]
  - BLADDER TRANSITIONAL CELL CARCINOMA [None]
  - GLOMERULONEPHRITIS MEMBRANOUS [None]
  - GRAFT LOSS [None]
  - HAEMATURIA [None]
  - NEPHRECTOMY [None]
  - NEPHROURETERECTOMY [None]
  - PYREXIA [None]
  - RENAL CELL CARCINOMA [None]
  - RENAL FAILURE [None]
  - TRANSURETHRAL PROSTATECTOMY [None]
  - URINARY BLADDER EXCISION [None]
